FAERS Safety Report 4811043-8 (Version None)
Quarter: 2005Q4

REPORT INFORMATION
  Report Type: 
  Country: None (occurrence: None)
  Receive Date: 20051027
  Receipt Date: 20051019
  Transmission Date: 20060501
  Serious: Yes (Other)
  Sender: FDA-Public Use
  Company Number: IE-JNJFOC-20050805280

PATIENT
  Sex: Female
  Weight: 25.5 kg

DRUGS (3)
  1. RISPERDAL [Suspect]
     Route: 048
  2. RISPERDAL [Suspect]
     Indication: AGITATION
     Dosage: NOCTE
     Route: 048
  3. RISPERDAL [Suspect]
     Indication: AUTISM
     Dosage: NOCTE
     Route: 048

REACTIONS (1)
  - PRECOCIOUS PUBERTY [None]
